FAERS Safety Report 10926275 (Version 2)
Quarter: 2015Q1

REPORT INFORMATION
  Report Type: Spontaneous
  Country: RU (occurrence: RU)
  Receive Date: 20150318
  Receipt Date: 20150319
  Transmission Date: 20150721
  Serious: Yes (Hospitalization, Other)
  Sender: FDA-Public Use
  Company Number: RU-BRISTOL-MYERS SQUIBB COMPANY-BMS-2015-014509

PATIENT
  Age: 11 Year
  Sex: Female

DRUGS (1)
  1. ABATACEPT [Suspect]
     Active Substance: ABATACEPT
     Indication: JUVENILE IDIOPATHIC ARTHRITIS
     Dosage: UNK
     Route: 065
     Dates: end: 20141204

REACTIONS (5)
  - Pain [Unknown]
  - Respiratory disorder [Unknown]
  - Thrombocytopenia [Unknown]
  - Haemorrhage [Unknown]
  - Varicella [Unknown]

NARRATIVE: CASE EVENT DATE: 201409
